FAERS Safety Report 5267951-X (Version None)
Quarter: 2007Q1

REPORT INFORMATION
  Report Type: 
  Country: None (occurrence: None)
  Receive Date: 20061213
  Receipt Date: 20020227
  Transmission Date: 20070707
  Serious: No
  Sender: FDA-Public Use
  Company Number: 2001UW16003

PATIENT
  Age: 50 Year
  Sex: Female
  Weight: 68.2664 kg

DRUGS (4)
  1. NOLVADEX [Suspect]
     Indication: BREAST CANCER
     Dosage: 20 MG DAILY PO
     Route: 048
     Dates: start: 20001001
  2. VITAMINS [Concomitant]
  3. CELEXA [Concomitant]
  4. CELEBREX [Concomitant]

REACTIONS (5)
  - ENDOMETRIAL HYPERPLASIA [None]
  - ENDOMETRIOSIS [None]
  - PREMATURE MENOPAUSE [None]
  - UTERINE LEIOMYOMA [None]
  - UTERINE POLYP [None]
